FAERS Safety Report 9416341 (Version 1)
Quarter: 2013Q3

REPORT INFORMATION
  Report Type: Spontaneous
  Country: US (occurrence: US)
  Receive Date: 20130724
  Receipt Date: 20130724
  Transmission Date: 20140515
  Serious: No
  Sender: FDA-Public Use
  Company Number: US-009507513-1307USA004699

PATIENT
  Age: 54 Year
  Sex: Female

DRUGS (2)
  1. REBETOL [Suspect]
     Route: 048
  2. PEGINTRON [Suspect]

REACTIONS (1)
  - Drug ineffective [Unknown]
